FAERS Safety Report 5470655-1 (Version None)
Quarter: 2007Q3

REPORT INFORMATION
  Report Type: 
  Country: None (occurrence: None)
  Receive Date: 20070925
  Receipt Date: 20070913
  Transmission Date: 20080115
  Serious: Yes (Hospitalization)
  Sender: FDA-Public Use
  Company Number: GXKR2007NL07962

PATIENT
  Age: 15 Month
  Sex: Male

DRUGS (5)
  1. PARACETAMOL (NGX)(PARACETAMOL) UNKNOWN [Suspect]
     Indication: PYREXIA
     Dosage: 240 MG, QID
  2. VALPROIC ACID [Suspect]
     Indication: CONVULSION
     Dosage: 31MG/KG/DAY, 26MG/KG/DAY=45MG/L
  3. TOPIRAMATE [Suspect]
     Indication: CONVULSION
     Dosage: 6MG/KG/DAY, 3.9MG/KG/DAY
  4. LEVOCARNITINE (LEVOCARNITINE) [Concomitant]
  5. CLOBAZAM (CLOBAZAM) [Concomitant]

REACTIONS (3)
  - DRUG INTERACTION [None]
  - HEPATOCELLULAR DAMAGE [None]
  - HEPATOTOXICITY [None]
